FAERS Safety Report 4340882-5 (Version None)
Quarter: 2004Q2

REPORT INFORMATION
  Report Type: 
  Country: None (occurrence: None)
  Receive Date: 20040413
  Receipt Date: 20040406
  Transmission Date: 20050107
  Serious: Yes (Hospitalization)
  Sender: FDA-Public Use
  Company Number: 2004200565US

PATIENT
  Age: 70 Year
  Sex: Male
  Weight: 99.8 kg

DRUGS (4)
  1. CELEBREX [Suspect]
     Indication: ARTHRITIS
     Dosage: 200 MG, QD
     Dates: start: 20030720
  2. ASPIRIN [Concomitant]
  3. NIACIN [Concomitant]
  4. ATENOLOL [Concomitant]

REACTIONS (3)
  - CHILLS [None]
  - DYSPEPSIA [None]
  - VOMITING [None]
